FAERS Safety Report 5233160-3 (Version None)
Quarter: 2007Q1

REPORT INFORMATION
  Report Type: 
  Country: None (occurrence: None)
  Receive Date: 20070207
  Receipt Date: 20070129
  Transmission Date: 20070707
  Serious: Yes (Other)
  Sender: FDA-Public Use
  Company Number: BR-PFIZER INC-2007007765

PATIENT
  Sex: Female

DRUGS (11)
  1. NITRADISC [Suspect]
     Indication: ANGINA PECTORIS
     Route: 062
     Dates: start: 20050401, end: 20070121
  2. MONOCORDIL [Suspect]
     Indication: ANGINA PECTORIS
     Route: 048
     Dates: start: 20070122
  3. OMEPRAZOLE [Concomitant]
     Route: 048
  4. VASTAREL [Concomitant]
     Route: 048
  5. CARVEDILOL [Concomitant]
     Route: 048
  6. CITALOPRAM HYDROBROMIDE [Concomitant]
     Route: 048
  7. HIGROTON [Concomitant]
     Route: 048
  8. PENTOXIFYLLINE [Concomitant]
     Route: 048
  9. DIOVANE [Concomitant]
     Route: 048
  10. AAS [Concomitant]
     Route: 048
  11. SIMVASTATIN [Concomitant]
     Route: 048

REACTIONS (2)
  - BLOOD PRESSURE INCREASED [None]
  - TACHYCARDIA [None]
